FAERS Safety Report 11795010 (Version 1)
Quarter: 2015Q4

REPORT INFORMATION
  Report Type: Spontaneous
  Country: US (occurrence: US)
  Receive Date: 20151202
  Receipt Date: 20151202
  Transmission Date: 20160305
  Serious: No
  Sender: FDA-Public Use
  Company Number: US-EISAI MEDICAL RESEARCH-EC-2015-012354

PATIENT
  Age: 48 Year
  Sex: Female

DRUGS (4)
  1. SYNTHROID [Concomitant]
     Active Substance: LEVOTHYROXINE SODIUM
     Indication: HYPOTHYROIDISM
  2. BELVIQ [Suspect]
     Active Substance: LORCASERIN HYDROCHLORIDE
     Indication: WEIGHT DECREASED
     Route: 048
     Dates: start: 201501, end: 201511
  3. OPRANA [Concomitant]
     Indication: PAIN
  4. HCTZ [Concomitant]
     Active Substance: HYDROCHLOROTHIAZIDE
     Indication: OEDEMA PERIPHERAL

REACTIONS (4)
  - Pain in extremity [Unknown]
  - Feeling abnormal [Unknown]
  - Coordination abnormal [Unknown]
  - Confusional state [Unknown]

NARRATIVE: CASE EVENT DATE: 201501
